FAERS Safety Report 9001474 (Version 1)
Quarter: 2013Q1

REPORT INFORMATION
  Report Type: Spontaneous
  Country: GB (occurrence: GB)
  Receive Date: 20130107
  Receipt Date: 20130107
  Transmission Date: 20140127
  Serious: Yes (Other)
  Sender: FDA-Public Use
  Company Number: PHHY2013GB001054

PATIENT
  Sex: Male

DRUGS (1)
  1. SERTRALINE [Suspect]
     Indication: DEPRESSION
     Dosage: 100 MG, BID
     Route: 048
     Dates: start: 201210

REACTIONS (4)
  - Impaired work ability [Not Recovered/Not Resolved]
  - Decreased activity [Not Recovered/Not Resolved]
  - Mood altered [Not Recovered/Not Resolved]
  - Libido decreased [Not Recovered/Not Resolved]
